FAERS Safety Report 8504696-4 (Version None)
Quarter: 2012Q3

REPORT INFORMATION
  Report Type: 
  Country: None (occurrence: None)
  Receive Date: 20120711
  Receipt Date: 20120626
  Transmission Date: 20120928
  Serious: Yes (Hospitalization, Disabling)
  Sender: FDA-Public Use
  Company Number: BR-ROCHE-1081920

PATIENT
  Sex: Male
  Weight: 62 kg

DRUGS (1)
  1. ISOTRETINOIN [Suspect]
     Indication: ACNE
     Dates: start: 20120301

REACTIONS (5)
  - BLOOD CREATINE PHOSPHOKINASE ABNORMAL [None]
  - MYOCARDIAL INFARCTION [None]
  - HYPERTENSION [None]
  - BREAST ENLARGEMENT [None]
  - MALAISE [None]
